FAERS Safety Report 4782405-2 (Version None)
Quarter: 2005Q3

REPORT INFORMATION
  Report Type: 
  Country: None (occurrence: None)
  Receive Date: 20050929
  Receipt Date: 20030623
  Transmission Date: 20060218
  Serious: No
  Sender: FDA-Public Use
  Company Number: US-GLAXOSMITHKLINE-A0413547A

PATIENT
  Age: 60 Year
  Sex: Female

DRUGS (2)
  1. COREG [Suspect]
     Dosage: 12.5MG TWICE PER DAY
     Route: 048
     Dates: start: 20010401
  2. DIOVAN [Concomitant]

REACTIONS (1)
  - ALOPECIA [None]
